FAERS Safety Report 8812613 (Version 1)
Quarter: 2012Q4

REPORT INFORMATION
  Report Type: 
  Country: BR (occurrence: BR)
  Receive Date: 20120927
  Receipt Date: 20120927
  Transmission Date: 20130627
  Serious: Yes (Other)
  Sender: FDA-Public Use
  Company Number: PHHY2012BR083707

PATIENT
  Sex: Female
  Weight: 67 kg

DRUGS (4)
  1. DIOVAN AMLO FIX [Suspect]
     Indication: HYPERTENSION
     Dosage: 1 tablet (160/5 mg), daily
  2. RIVOTRIL [Concomitant]
     Indication: SLEEP DISORDER
     Dosage: 1 tablet, daily
     Route: 048
  3. ASPIRIN [Concomitant]
     Indication: ANTICOAGULANT THERAPY
     Dosage: 1 tablet, daily
     Route: 048
  4. EFRANE [Concomitant]
     Indication: DEPRESSION
     Dosage: 1 tablet, daily

REACTIONS (4)
  - Blood pressure increased [Recovered/Resolved]
  - Hearing impaired [Not Recovered/Not Resolved]
  - Tympanic membrane perforation [Not Recovered/Not Resolved]
  - Ear infection [Unknown]
